FAERS Safety Report 9146251 (Version 1)
Quarter: 2013Q1

REPORT INFORMATION
  Report Type: Spontaneous
  Country: FR (occurrence: FR)
  Receive Date: 20130307
  Receipt Date: 20130307
  Transmission Date: 20140127
  Serious: Yes (Death, Hospitalization)
  Sender: FDA-Public Use
  Company Number: FR-PFIZER INC-2013072848

PATIENT
  Age: 62 Year
  Sex: Female

DRUGS (10)
  1. SUTENT [Suspect]
     Indication: RENAL CANCER METASTATIC
     Dosage: 50 MG A DAY
     Route: 048
     Dates: start: 20121024, end: 20121125
  2. SUTENT [Suspect]
     Dosage: 37.5 MG A DAY
     Route: 048
     Dates: start: 20121205, end: 20130105
  3. INEXIUM [Concomitant]
     Dosage: 20 MG, UNK
  4. KEPPRA [Concomitant]
     Dosage: 500 MG TWICE DAILY
  5. KERLONE [Concomitant]
     Dosage: 20 MG, UNK
  6. HYPERIUM [Concomitant]
     Dosage: 1 MG, UNK
  7. NEURONTIN [Concomitant]
     Dosage: 300 MG THRICE DAILY
  8. DOLIPRANE [Concomitant]
     Dosage: 1 G THRICE DAILY
  9. FORLAX [Concomitant]
  10. SKENAN [Concomitant]

REACTIONS (3)
  - Death [Fatal]
  - Hypertension [Unknown]
  - Osteonecrosis of jaw [Not Recovered/Not Resolved]
